FAERS Safety Report 17095095 (Version 1)
Quarter: 2019Q4

REPORT INFORMATION
  Report Type: Spontaneous
  Country: FR (occurrence: FR)
  Receive Date: 20191130
  Receipt Date: 20191130
  Transmission Date: 20200122
  Serious: Yes (Hospitalization)
  Sender: FDA-Public Use
  Company Number: FR-TEVA-2019-FR-1143207

PATIENT
  Age: 86 Year
  Sex: Female
  Weight: 60 kg

DRUGS (1)
  1. FURADANTINE 50 MG, GELULE [Suspect]
     Active Substance: NITROFURANTOIN
     Indication: URINARY TRACT INFECTION
     Dosage: 300 MG PER DAY
     Route: 048
     Dates: start: 20190919, end: 20190924

REACTIONS (2)
  - Condition aggravated [Recovered/Resolved]
  - Neuropathy peripheral [Recovered/Resolved]

NARRATIVE: CASE EVENT DATE: 20190924
